FAERS Safety Report 11286267 (Version 1)
Quarter: 2015Q3

REPORT INFORMATION
  Report Type: Spontaneous
  Country: US (occurrence: US)
  Receive Date: 20150721
  Receipt Date: 20150721
  Transmission Date: 20151125
  Serious: No
  Sender: FDA-Public Use
  Company Number: US-UNITED THERAPEUTICS-UNT-2014-012299

PATIENT
  Age: 70 Year
  Sex: Female
  Weight: 80.73 kg

DRUGS (4)
  1. ASPIRIN                            /00002701/ [Concomitant]
     Active Substance: ASPIRIN
     Indication: PRODUCT USED FOR UNKNOWN INDICATION
  2. TRACLEER [Concomitant]
     Active Substance: BOSENTAN
     Indication: PRODUCT USED FOR UNKNOWN INDICATION
  3. ADCIRCA [Concomitant]
     Active Substance: TADALAFIL
     Indication: PRODUCT USED FOR UNKNOWN INDICATION
  4. TYVASO [Suspect]
     Active Substance: TREPROSTINIL
     Indication: PULMONARY ARTERIAL HYPERTENSION
     Dosage: 36-72 MICROGRAMS, QID
     Dates: start: 20141201

REACTIONS (17)
  - Diarrhoea [Not Recovered/Not Resolved]
  - Hypotension [Unknown]
  - Myalgia [Unknown]
  - Oral mucosal exfoliation [Unknown]
  - Pyrexia [Unknown]
  - Flushing [Recovering/Resolving]
  - Upper respiratory tract infection [Recovering/Resolving]
  - Muscle spasms [Unknown]
  - Arthralgia [Unknown]
  - Nausea [Unknown]
  - Influenza [Unknown]
  - Pain [Unknown]
  - Nasal congestion [Recovering/Resolving]
  - Headache [Unknown]
  - Hot flush [Unknown]
  - Cough [Unknown]
  - Vomiting [Unknown]

NARRATIVE: CASE EVENT DATE: 201412
